FAERS Safety Report 14909886 (Version 2)
Quarter: 2018Q2

REPORT INFORMATION
  Report Type: Report from Study
  Country: US (occurrence: US)
  Receive Date: 20180517
  Receipt Date: 20180629
  Transmission Date: 20180711
  Serious: Yes (Other)
  Sender: FDA-Public Use
  Company Number: PHEH2018US018292

PATIENT
  Sex: Female

DRUGS (1)
  1. ENTRESTO [Suspect]
     Active Substance: SACUBITRIL\VALSARTAN
     Indication: CARDIAC FAILURE
     Route: 048

REACTIONS (6)
  - Depression [Unknown]
  - Diabetes mellitus [Unknown]
  - Fatigue [Unknown]
  - Atrial fibrillation [Unknown]
  - Dizziness [Recovering/Resolving]
  - Exercise tolerance decreased [Unknown]
